FAERS Safety Report 7761015 (Version 3)
Quarter: 2014Q1

REPORT INFORMATION
  Report Type: Spontaneous
  Country: FR (occurrence: FR)
  Receive Date: 20110114
  Receipt Date: 20140129
  Transmission Date: 20141002
  Serious: Yes (Hospitalization, Other)
  Sender: FDA-Public Use
  Company Number: FR-PFIZER INC-2011008919

PATIENT
  Age: 24 Year
  Sex: Male

DRUGS (8)
  1. ATARAX [Suspect]
     Indication: ANXIETY
     Dosage: 25 MG, 2X/DAY
     Route: 048
  2. LAMOTRIGINE [Suspect]
     Dosage: 100 MG, 2X/DAY
     Route: 048
  3. KEPPRA [Suspect]
     Indication: EPILEPSY
     Dosage: 500 MG, 6X/DAY
     Route: 048
  4. ABILIFY [Suspect]
     Dosage: 10 MG, 2X/DAY
     Route: 048
     Dates: start: 20100407
  5. TEGRETOL [Suspect]
     Indication: EPILEPSY
     Dosage: 200 MG, 3X/DAY
     Route: 048
  6. URBANYL [Suspect]
     Indication: EPILEPSY
     Dosage: 10 MG, 6X/DAY
     Route: 048
  7. THERALENE [Suspect]
     Indication: INSOMNIA
     Dosage: 15 ORAL DROPS/DAY
     Route: 048
  8. TRANXENE [Suspect]
     Indication: ANXIETY
     Dosage: 20 MG, 3X/DAY
     Route: 048

REACTIONS (3)
  - Abnormal behaviour [Unknown]
  - Electrocardiogram QT prolonged [Unknown]
  - Bradycardia [Not Recovered/Not Resolved]
